FAERS Safety Report 13491576 (Version 1)
Quarter: 2017Q2

REPORT INFORMATION
  Report Type: Spontaneous
  Country: FR (occurrence: FR)
  Receive Date: 20170427
  Receipt Date: 20170427
  Transmission Date: 20170830
  Serious: Yes (Life-Threatening, Hospitalization)
  Sender: FDA-Public Use
  Company Number: FR-ACCORD-050670

PATIENT
  Age: 49 Year
  Sex: Male

DRUGS (3)
  1. ZOPHREN [Concomitant]
     Active Substance: ONDANSETRON
     Indication: PREMEDICATION
     Dosage: STRENGTH: 4 MG.?DOSE: 2 TABLETS 15 MIN TO 1 HOUR BEFORE CHEMOTHERAPY
     Route: 048
  2. MEDROL [Concomitant]
     Active Substance: METHYLPREDNISOLONE
     Indication: PREMEDICATION
     Dosage: STRENGTH: 100 MG,?DOSE: HALF A TABLET TWICE DAILY (IN THE MORNING AND IN THE EVENING)
     Route: 048
  3. DOCETAXEL ACCORD [Suspect]
     Active Substance: DOCETAXEL
     Indication: SQUAMOUS CELL CARCINOMA OF LUNG
     Dosage: STRENGTH: 160 MG/8 ML?FIRST COURSE, 128 MG PER CYCLE (EVERY 3 WEEKS)
     Route: 042
     Dates: start: 20170310, end: 20170331

REACTIONS (4)
  - Asphyxia [Recovered/Resolved]
  - Type I hypersensitivity [Recovered/Resolved]
  - Bronchospasm [Recovered/Resolved]
  - Peripheral sensory neuropathy [Recovered/Resolved]

NARRATIVE: CASE EVENT DATE: 20170310
